FAERS Safety Report 4302152-0 (Version None)
Quarter: 2004Q1

REPORT INFORMATION
  Report Type: 
  Country: None (occurrence: None)
  Receive Date: 20040220
  Receipt Date: 20040209
  Transmission Date: 20041129
  Serious: Yes (Other)
  Sender: FDA-Public Use
  Company Number: A-CH2003-03795

PATIENT
  Age: 55 Year
  Sex: Female

DRUGS (10)
  1. TRACLEER [Suspect]
     Indication: PULMONARY HYPERTENSION
     Dosage: 62.5 MG, BID, ORAL; 125 MG, BID, ORAL; 62.5 MG, BID, ORAL; 62.5 MG, BID, ORAL
     Route: 048
     Dates: start: 20021112, end: 20021209
  2. TRACLEER [Suspect]
     Indication: PULMONARY HYPERTENSION
     Dosage: 62.5 MG, BID, ORAL; 125 MG, BID, ORAL; 62.5 MG, BID, ORAL; 62.5 MG, BID, ORAL
     Route: 048
     Dates: start: 20021210, end: 20031102
  3. TRACLEER [Suspect]
     Indication: PULMONARY HYPERTENSION
     Dosage: 62.5 MG, BID, ORAL; 125 MG, BID, ORAL; 62.5 MG, BID, ORAL; 62.5 MG, BID, ORAL
     Route: 048
     Dates: start: 20031103, end: 20031219
  4. TRACLEER [Suspect]
     Indication: PULMONARY HYPERTENSION
     Dosage: 62.5 MG, BID, ORAL; 125 MG, BID, ORAL; 62.5 MG, BID, ORAL; 62.5 MG, BID, ORAL
     Route: 048
     Dates: start: 20040114, end: 20040119
  5. PREVISCAN (FLUINDIONE) [Concomitant]
  6. ACETAMINOPHEN [Concomitant]
  7. OXEOL (BAMBUTEROL HYDROCHLORIDE) [Concomitant]
  8. DIPROSONE [Concomitant]
  9. DAIVONEX (CALCIPOTRIOL) [Concomitant]
  10. DIPROSALIC (ACETYLSALICYLIC ACID, BETAMETHASONE DIPROPIONATE) [Concomitant]

REACTIONS (7)
  - ALANINE AMINOTRANSFERASE INCREASED [None]
  - ASPARTATE AMINOTRANSFERASE INCREASED [None]
  - ASTHENIA [None]
  - BLOOD ALKALINE PHOSPHATASE INCREASED [None]
  - GAMMA-GLUTAMYLTRANSFERASE INCREASED [None]
  - HEPATIC ENZYME INCREASED [None]
  - NAUSEA [None]
